FAERS Safety Report 8963877 (Version 4)
Quarter: 2014Q2

REPORT INFORMATION
  Report Type: Report from Study
  Country: JP (occurrence: JP)
  Receive Date: 20121214
  Receipt Date: 20140516
  Transmission Date: 20141212
  Serious: Yes (Death, Hospitalization, Disabling)
  Sender: FDA-Public Use
  Company Number: JP-MERCK-1204USA02506

PATIENT
  Age: 35 Year
  Sex: Male

DRUGS (18)
  1. ZOLINZA CAPSULES 100MG [Suspect]
     Indication: MYCOSIS FUNGOIDES
     Dosage: 400 MG, QD
     Route: 048
     Dates: start: 20120223, end: 20120516
  2. ZOLINZA CAPSULES 100MG [Suspect]
     Dosage: 300 MG, QD
     Route: 048
     Dates: start: 20120517, end: 20120613
  3. ALOSITOL [Concomitant]
     Indication: PROPHYLAXIS
     Dosage: 100 MG, QD
     Route: 048
     Dates: start: 20120223, end: 20120229
  4. URSO [Concomitant]
     Indication: CHRONIC GRAFT VERSUS HOST DISEASE
     Dosage: 200 MG, TID
     Route: 048
     Dates: start: 20120223, end: 20120707
  5. TRANSAMIN [Concomitant]
     Indication: PROPHYLAXIS
     Dosage: 250 MG, TID
     Route: 048
     Dates: start: 20120223, end: 20120229
  6. TRANSAMIN [Concomitant]
     Indication: MOUTH HAEMORRHAGE
  7. BAKTAR [Concomitant]
     Indication: PROPHYLAXIS
     Dosage: 1 DF, QD
     Route: 048
     Dates: start: 20120223, end: 20120306
  8. PARIET [Concomitant]
     Indication: PROPHYLAXIS AGAINST GASTROINTESTINAL ULCER
     Dosage: 10 MG, QD
     Route: 048
     Dates: start: 20120223, end: 20120524
  9. VALTREX [Concomitant]
     Indication: ANTIVIRAL PROPHYLAXIS
     Dosage: 500 MG, QD
     Route: 048
     Dates: start: 20120223, end: 20120306
  10. HIRUDOID [Concomitant]
     Indication: CHRONIC GRAFT VERSUS HOST DISEASE
     Dosage: PROPER DOSAGE WITH SEVERAL TIMES
     Route: 061
     Dates: start: 20120225, end: 20120708
  11. PRIMPERAN [Concomitant]
     Indication: PROPHYLAXIS
     Dosage: 5 MG, QD
     Route: 048
     Dates: start: 20120223, end: 20130614
  12. PRIMPERAN [Concomitant]
     Indication: NAUSEA
  13. MAGLAX (MAGNESIUM OXIDE) [Concomitant]
     Indication: CONSTIPATION
     Dosage: 250 MG, TID
     Route: 048
     Dates: start: 20120302, end: 20120331
  14. PREDONINE [Concomitant]
     Indication: MYCOSIS FUNGOIDES
     Dosage: 25 MG, QD
     Route: 048
     Dates: start: 20120223, end: 20120228
  15. PREDONINE [Concomitant]
     Dosage: 20 MG, QD
     Route: 048
     Dates: start: 20120229, end: 20120306
  16. PREDONINE [Concomitant]
     Dosage: 5 MG, QD
     Route: 048
     Dates: end: 20120524
  17. CHLOR-TRIMETON [Concomitant]
     Indication: PROPHYLAXIS
     Dosage: 10 MG, UNK
     Route: 051
     Dates: start: 20120301, end: 20120302
  18. SOLU-CORTEF [Concomitant]
     Indication: PROPHYLAXIS
     Dosage: 100 MG, QD
     Route: 051
     Dates: start: 20120229, end: 20120305

REACTIONS (18)
  - Sepsis [Recovered/Resolved]
  - Pneumonia [Fatal]
  - Diarrhoea [Not Recovered/Not Resolved]
  - Stomatitis [Not Recovered/Not Resolved]
  - Proctalgia [Not Recovered/Not Resolved]
  - Pneumocystis jirovecii pneumonia [Not Recovered/Not Resolved]
  - Oedema [Fatal]
  - Malaise [Not Recovered/Not Resolved]
  - Blood pressure increased [Not Recovered/Not Resolved]
  - Hypokalaemia [Recovered/Resolved]
  - Dehydration [Recovered/Resolved]
  - Nausea [Not Recovered/Not Resolved]
  - Platelet count decreased [Not Recovered/Not Resolved]
  - Blood bilirubin increased [Recovered/Resolved]
  - Drug ineffective [Unknown]
  - Blood urea increased [Recovered/Resolved]
  - Pyrexia [Not Recovered/Not Resolved]
  - Blood creatinine abnormal [Fatal]
